FAERS Safety Report 16063049 (Version 1)
Quarter: 2019Q1

REPORT INFORMATION
  Report Type: Spontaneous
  Country: US (occurrence: US)
  Receive Date: 20190213
  Receipt Date: 20190213
  Transmission Date: 20190418
  Serious: No
  Sender: FDA-Public Use
  Company Number: None

PATIENT
  Age: 29 Year
  Sex: Female

DRUGS (1)
  1. MAVYRET [Suspect]
     Active Substance: GLECAPREVIR\PIBRENTASVIR
     Indication: HEPATITIS B
     Dosage: ?          OTHER DOSE:3TABS;?
     Route: 048
     Dates: start: 201901

REACTIONS (1)
  - Fatigue [None]

NARRATIVE: CASE EVENT DATE: 20190124
